FAERS Safety Report 6898128-X (Version None)
Quarter: 2010Q3

REPORT INFORMATION
  Report Type: 
  Country: None (occurrence: None)
  Receive Date: 20100729
  Receipt Date: 20100719
  Transmission Date: 20110219
  Serious: Yes (Hospitalization)
  Sender: FDA-Public Use
  Company Number: 7011721

PATIENT
  Age: 61 Year
  Sex: Female

DRUGS (1)
  1. REBIF [Suspect]
     Indication: MULTIPLE SCLEROSIS
     Dosage: 44 MCG, 3 IN 1 WK, SUBCUTANEOUS
     Route: 058
     Dates: start: 20021003

REACTIONS (13)
  - BACK PAIN [None]
  - BALANCE DISORDER [None]
  - CHILLS [None]
  - CORONARY ARTERY OCCLUSION [None]
  - FATIGUE [None]
  - FEELING ABNORMAL [None]
  - FEELING COLD [None]
  - FEELING DRUNK [None]
  - HEADACHE [None]
  - MUSCLE STRAIN [None]
  - NASAL CONGESTION [None]
  - PULMONARY HYPERTENSION [None]
  - TACHYCARDIA [None]
